FAERS Safety Report 24049135 (Version 2)
Quarter: 2024Q3

REPORT INFORMATION
  Report Type: Spontaneous
  Country: JP (occurrence: JP)
  Receive Date: 20240704
  Receipt Date: 20240909
  Transmission Date: 20241017
  Serious: Yes (Hospitalization)
  Sender: MITSUBISHI TANABE PHARMA
  Company Number: JP-MTPC-MTPC2024-0013669

PATIENT
  Age: 56 Year
  Sex: Female

DRUGS (3)
  1. EDARAVONE [Suspect]
     Active Substance: EDARAVONE
     Indication: Amyotrophic lateral sclerosis
     Dosage: 100 MILLILITER, QD
     Route: 048
     Dates: start: 20231114, end: 20231227
  2. EDARAVONE [Suspect]
     Active Substance: EDARAVONE
     Indication: Amyotrophic lateral sclerosis
     Dosage: 100 MILLILITER, QD
     Route: 048
     Dates: start: 20231114, end: 20231227
  3. RILUZOLE [Suspect]
     Active Substance: RILUZOLE
     Indication: Amyotrophic lateral sclerosis
     Dosage: 50 MILLIGRAM, BID
     Route: 048
     Dates: start: 20231114, end: 20231227

REACTIONS (2)
  - Pancreatitis acute [Recovering/Resolving]
  - Off label use [Unknown]

NARRATIVE: CASE EVENT DATE: 20231215
